FAERS Safety Report 21559716 (Version 1)
Quarter: 2022Q4

REPORT INFORMATION
  Report Type: Spontaneous
  Country: US (occurrence: None)
  Receive Date: 20221106
  Receipt Date: 20221106
  Transmission Date: 20230113
  Serious: Yes (Life-Threatening, Hospitalization, Other)
  Sender: FDA-Public Use
  Company Number: None

PATIENT
  Age: 35 Year
  Sex: Female
  Weight: 58.97 kg

DRUGS (1)
  1. EPINEPHRINE [Suspect]
     Active Substance: EPINEPHRINE
     Indication: Anaphylactic reaction
     Dosage: 0.3 MG   ?2 INJECTIONS  INTO THE MUSCLE
     Route: 058
     Dates: start: 20221031, end: 20221031

REACTIONS (3)
  - Drug ineffective [None]
  - Needle issue [None]
  - Device malfunction [None]

NARRATIVE: CASE EVENT DATE: 20221031
